FAERS Safety Report 23185306 (Version 1)
Quarter: 2023Q4

REPORT INFORMATION
  Report Type: Report from Study
  Country: AU (occurrence: AU)
  Receive Date: 20231115
  Receipt Date: 20231115
  Transmission Date: 20240110
  Serious: Yes (Other)
  Sender: FDA-Public Use
  Company Number: AU-TAKEDA-2023TUS108806

PATIENT
  Sex: Female

DRUGS (1)
  1. VEDOLIZUMAB [Suspect]
     Active Substance: VEDOLIZUMAB
     Indication: Crohn^s disease
     Dosage: 300 MILLIGRAM
     Route: 042

REACTIONS (4)
  - Skin cancer [Not Recovered/Not Resolved]
  - Mobility decreased [Not Recovered/Not Resolved]
  - Hearing disability [Not Recovered/Not Resolved]
  - Malaise [Unknown]
